FAERS Safety Report 16811270 (Version 1)
Quarter: 2019Q3

REPORT INFORMATION
  Report Type: Spontaneous
  Country: US (occurrence: US)
  Receive Date: 20190916
  Receipt Date: 20190916
  Transmission Date: 20191005
  Serious: Yes (Other)
  Sender: FDA-Public Use
  Company Number: US-FRESENIUS KABI-FK201910061

PATIENT
  Age: 56 Year
  Sex: Female

DRUGS (3)
  1. ROPIVACAINHYDROCHLORID KABI 5 MG / ML [Suspect]
     Active Substance: ROPIVACAINE HYDROCHLORIDE
     Indication: OSTEOARTHRITIS
     Route: 065
  2. IOPAMIDOL [Suspect]
     Active Substance: IOPAMIDOL
     Indication: OSTEOARTHRITIS
  3. SALICYLIC ACID/TRIAMCINOLONE ACETONIDE [Suspect]
     Active Substance: SALICYLIC ACID\TRIAMCINOLONE ACETONIDE
     Indication: OSTEOARTHRITIS

REACTIONS (1)
  - Osteoarthritis [Unknown]
